FAERS Safety Report 13906728 (Version 1)
Quarter: 2017Q3

REPORT INFORMATION
  Report Type: Report from Study
  Country: CA (occurrence: CA)
  Receive Date: 20170825
  Receipt Date: 20170825
  Transmission Date: 20171127
  Serious: Yes (Hospitalization)
  Sender: FDA-Public Use
  Company Number: CA-ALLERGAN-1747142US

PATIENT
  Sex: Female

DRUGS (1)
  1. LINACLOTIDE 290MCG CAP (11273X) [Suspect]
     Active Substance: LINACLOTIDE
     Indication: IRRITABLE BOWEL SYNDROME
     Route: 048

REACTIONS (6)
  - Constipation [Unknown]
  - Diarrhoea [Unknown]
  - Faecal vomiting [Unknown]
  - Nausea [Unknown]
  - Wrong technique in product usage process [Unknown]
  - Drug ineffective [Unknown]
